FAERS Safety Report 12712788 (Version 3)
Quarter: 2017Q3

REPORT INFORMATION
  Report Type: Report from Study
  Country: None (occurrence: AU)
  Receive Date: 20160902
  Receipt Date: 20170822
  Transmission Date: 20171127
  Serious: Yes (Other)
  Sender: FDA-Public Use
  Company Number: AU-ABBVIE-16P-008-1716297-00

PATIENT
  Age: 70 Year
  Sex: Male

DRUGS (1)
  1. LUCRIN DEPOT [Suspect]
     Active Substance: LEUPROLIDE ACETATE
     Indication: PROSTATE CANCER
     Route: 065
     Dates: start: 20090101

REACTIONS (6)
  - Bladder obstruction [Unknown]
  - Adhesion [Unknown]
  - Abdominal distension [Unknown]
  - Bladder dilatation [Unknown]
  - Hypertonic bladder [Unknown]
  - Incontinence [Unknown]

NARRATIVE: CASE EVENT DATE: 2014
